FAERS Safety Report 10282394 (Version 1)
Quarter: 2014Q3

REPORT INFORMATION
  Report Type: Spontaneous
  Country: CN (occurrence: CN)
  Receive Date: 20140707
  Receipt Date: 20140707
  Transmission Date: 20150326
  Serious: Yes (Life-Threatening, Other)
  Sender: FDA-Public Use
  Company Number: CN-ASTRAZENECA-2014SE47496

PATIENT
  Age: 44 Year
  Sex: Female

DRUGS (2)
  1. LIDOCAINE. [Suspect]
     Active Substance: LIDOCAINE
     Indication: LOCAL ANAESTHESIA
     Route: 050
  2. BUPIVACAINE [Suspect]
     Active Substance: BUPIVACAINE
     Indication: LOCAL ANAESTHESIA
     Route: 050

REACTIONS (4)
  - Anaphylactic shock [Recovered/Resolved]
  - Urticaria [Unknown]
  - Cardio-respiratory arrest [Recovered/Resolved]
  - Convulsion [Recovered/Resolved]
